FAERS Safety Report 8541316-7 (Version None)
Quarter: 2012Q3

REPORT INFORMATION
  Report Type: 
  Country: None (occurrence: None)
  Receive Date: 20120726
  Receipt Date: 20120718
  Transmission Date: 20120928
  Serious: Yes (Other)
  Sender: FDA-Public Use
  Company Number: JP-VERTEX PHARMACEUTICALS INC.-AE-2012-009725

PATIENT
  Age: 63 Year
  Sex: Male

DRUGS (9)
  1. BISOPROLOL FUMARATE [Concomitant]
     Route: 048
  2. REBETOL [Concomitant]
     Indication: HEPATITIS C
     Route: 048
     Dates: start: 20120621, end: 20120710
  3. PEG-INTRON [Concomitant]
     Indication: HEPATITIS C
     Route: 058
     Dates: start: 20120621
  4. DOXAZOSIN MESYLATE [Concomitant]
     Route: 048
  5. TELAVIC (TELAPREVIR) [Suspect]
     Indication: HEPATITIS C
     Route: 048
     Dates: start: 20120621, end: 20120625
  6. REBETOL [Concomitant]
     Route: 048
     Dates: start: 20120711
  7. FAMOTIDINE [Concomitant]
     Route: 048
     Dates: start: 20120629
  8. ALLOPURINOL [Concomitant]
     Route: 048
  9. DIOVAN [Concomitant]
     Route: 048

REACTIONS (1)
  - DRUG ERUPTION [None]
